FAERS Safety Report 25274415 (Version 2)
Quarter: 2025Q2

REPORT INFORMATION
  Report Type: Spontaneous
  Country: DE (occurrence: DE)
  Receive Date: 20250506
  Receipt Date: 20250513
  Transmission Date: 20250717
  Serious: Yes (Other)
  Sender: GILEAD
  Company Number: DE-PEI-202500008423

PATIENT
  Age: 35 Year
  Sex: Female

DRUGS (1)
  1. YESCARTA [Suspect]
     Active Substance: AXICABTAGENE CILOLEUCEL
     Indication: Diffuse large B-cell lymphoma
     Route: 065
     Dates: start: 20250402

REACTIONS (2)
  - Coma [Not Recovered/Not Resolved]
  - Immune effector cell-associated neurotoxicity syndrome [Not Recovered/Not Resolved]

NARRATIVE: CASE EVENT DATE: 20250405
